FAERS Safety Report 6802039-5 (Version None)
Quarter: 2010Q2

REPORT INFORMATION
  Report Type: 
  Country: None (occurrence: None)
  Receive Date: 20100629
  Receipt Date: 20071025
  Transmission Date: 20101027
  Serious: No
  Sender: FDA-Public Use
  Company Number: US-PFIZER INC-2007050415

PATIENT
  Sex: Male
  Weight: 79.4 kg

DRUGS (6)
  1. VIAGRA [Suspect]
     Indication: ERECTILE DYSFUNCTION
  2. OXYCONTIN [Concomitant]
  3. DIAZEPAM [Concomitant]
  4. RISPERDAL [Concomitant]
  5. OPIUM DERIVATIVES AND EXPECTORANTS [Concomitant]
  6. LEVITRA [Concomitant]

REACTIONS (2)
  - DRUG INEFFECTIVE [None]
  - DRUG PRESCRIBING ERROR [None]
